FAERS Safety Report 15488708 (Version 1)
Quarter: 2018Q4

REPORT INFORMATION
  Report Type: Spontaneous
  Country: US (occurrence: US)
  Receive Date: 20181011
  Receipt Date: 20181011
  Transmission Date: 20190205
  Serious: No
  Sender: FDA-Public Use
  Company Number: US-GLAXOSMITHKLINE-US2018178744

PATIENT
  Age: 65 Year
  Sex: Female

DRUGS (1)
  1. PREVACID 24 HR [Suspect]
     Active Substance: LANSOPRAZOLE
     Indication: GASTROOESOPHAGEAL REFLUX DISEASE
     Dosage: UNK
     Dates: start: 20180927, end: 20180929

REACTIONS (5)
  - Product use in unapproved indication [Unknown]
  - Diarrhoea [Recovered/Resolved with Sequelae]
  - Recalled product administered [Unknown]
  - Abdominal pain upper [Recovered/Resolved with Sequelae]
  - Nausea [Recovered/Resolved with Sequelae]
